FAERS Safety Report 23860314 (Version 2)
Quarter: 2024Q2

REPORT INFORMATION
  Report Type: Report from Study
  Country: US (occurrence: US)
  Receive Date: 20240515
  Receipt Date: 20240521
  Transmission Date: 20240716
  Serious: Yes (Hospitalization, Other)
  Sender: FDA-Public Use
  Company Number: US-ABBVIE-5759860

PATIENT
  Sex: Male
  Weight: 59 kg

DRUGS (1)
  1. HUMIRA [Suspect]
     Active Substance: ADALIMUMAB
     Indication: Rheumatoid arthritis
     Dosage: FORM STRENGTH UNITS: 40MILLIGRAM
     Route: 058
     Dates: start: 20190410

REACTIONS (7)
  - Meningitis streptococcal [Recovered/Resolved]
  - Failure to thrive [Recovered/Resolved]
  - Meningitis Escherichia [Recovered/Resolved]
  - Constipation [Recovered/Resolved]
  - Device leakage [Unknown]
  - Hiatus hernia [Recovered/Resolved]
  - Device related infection [Unknown]

NARRATIVE: CASE EVENT DATE: 20230101
